FAERS Safety Report 7653950-7 (Version None)
Quarter: 2011Q3

REPORT INFORMATION
  Report Type: 
  Country: None (occurrence: None)
  Receive Date: 20110803
  Receipt Date: 20110722
  Transmission Date: 20111222
  Serious: Yes (Other)
  Sender: FDA-Public Use
  Company Number: GB-JNJFOC-20110711215

PATIENT
  Sex: Male
  Weight: 95.5 kg

DRUGS (39)
  1. REMICADE [Suspect]
     Route: 042
     Dates: start: 20090518
  2. REMICADE [Suspect]
     Route: 042
     Dates: start: 20080512
  3. REMICADE [Suspect]
     Route: 042
     Dates: start: 20080317
  4. REMICADE [Suspect]
     Route: 042
     Dates: start: 20070611
  5. REMICADE [Suspect]
     Route: 042
     Dates: start: 20101122
  6. REMICADE [Suspect]
     Indication: CROHN'S DISEASE
     Route: 042
     Dates: start: 20081208
  7. REMICADE [Suspect]
     Route: 042
     Dates: start: 20090319
  8. REMICADE [Suspect]
     Route: 042
     Dates: start: 20090914
  9. REMICADE [Suspect]
     Route: 042
     Dates: start: 20091119
  10. REMICADE [Suspect]
     Route: 042
     Dates: start: 20100104
  11. REMICADE [Suspect]
     Route: 042
     Dates: start: 20100810
  12. REMICADE [Suspect]
     Route: 042
     Dates: start: 20080818
  13. REMICADE [Suspect]
     Route: 042
     Dates: start: 20071001
  14. OMEPRAZOLE [Concomitant]
     Indication: GASTROINTESTINAL DISORDER
  15. TEGRETOL [Concomitant]
     Indication: EPILEPSY
  16. LISINOPRIL [Concomitant]
     Indication: HYPERTENSION
  17. REMICADE [Suspect]
     Route: 042
     Dates: start: 20090720
  18. REMICADE [Suspect]
     Route: 042
     Dates: start: 20100426
  19. REMICADE [Suspect]
     Route: 042
     Dates: start: 20101004
  20. REMICADE [Suspect]
     Route: 042
     Dates: start: 20110321
  21. REMICADE [Suspect]
     Route: 042
     Dates: start: 20110516
  22. REMICADE [Suspect]
     Route: 042
     Dates: start: 20070730
  23. ASACOL [Concomitant]
     Indication: CROHN'S DISEASE
     Dosage: FREQUENCY ^TDS^
  24. ALENDRONIC ACID [Concomitant]
     Indication: OSTEOPENIA
  25. ADIZEM [Concomitant]
     Indication: HYPERTENSION
  26. REMICADE [Suspect]
     Route: 042
     Dates: start: 20090202
  27. REMICADE [Suspect]
     Route: 042
     Dates: start: 20080121
  28. REMICADE [Suspect]
     Route: 042
     Dates: start: 20071126
  29. REMICADE [Suspect]
     Route: 042
     Dates: start: 20070525
  30. HYDROXOCOBALAMIN [Concomitant]
     Indication: CROHN'S DISEASE
     Dosage: 1MG/ 1ML- FREQUENCY 3/12
  31. REMICADE [Suspect]
     Route: 042
     Dates: start: 20100621
  32. REMICADE [Suspect]
     Route: 042
     Dates: start: 20110124
  33. REMICADE [Suspect]
     Route: 042
     Dates: start: 20110711
  34. ADCAL D3 [Concomitant]
     Indication: OSTEOPENIA
  35. LEVOTHYROXINE SODIUM [Concomitant]
     Indication: HYPOTHYROIDISM
  36. REMICADE [Suspect]
     Route: 042
     Dates: start: 20100301
  37. REMICADE [Suspect]
     Route: 042
     Dates: start: 20081013
  38. FUROSEMIDE [Concomitant]
     Indication: DIURETIC THERAPY
  39. CLOBAZAM [Concomitant]
     Indication: EPILEPSY

REACTIONS (1)
  - BASAL CELL CARCINOMA [None]
